FAERS Safety Report 12943182 (Version 3)
Quarter: 2016Q4

REPORT INFORMATION
  Report Type: Spontaneous
  Country: US (occurrence: US)
  Receive Date: 20161115
  Receipt Date: 20161123
  Transmission Date: 20170207
  Serious: Yes (Other)
  Sender: FDA-Public Use
  Company Number: US-INCYTE CORPORATION-2016IN007024

PATIENT
  Age: 68 Year
  Sex: Male

DRUGS (1)
  1. JAKAFI [Suspect]
     Active Substance: RUXOLITINIB
     Dosage: 10 MG, BID
     Route: 048
     Dates: start: 20161013

REACTIONS (8)
  - Pulmonary hypertension [Unknown]
  - Activities of daily living impaired [Recovered/Resolved]
  - Balance disorder [Recovering/Resolving]
  - Dyspnoea [Unknown]
  - Insomnia [Recovered/Resolved]
  - Asthenia [Recovering/Resolving]
  - Fatigue [Unknown]
  - Constipation [Recovering/Resolving]

NARRATIVE: CASE EVENT DATE: 201610
